FAERS Safety Report 4353366-5 (Version None)
Quarter: 2004Q2

REPORT INFORMATION
  Report Type: 
  Country: None (occurrence: None)
  Receive Date: 20040426
  Receipt Date: 20040409
  Transmission Date: 20050107
  Serious: Yes (Other)
  Sender: FDA-Public Use
  Company Number: THYM-10117

PATIENT
  Age: 63 Year
  Sex: Female
  Weight: 111 kg

DRUGS (8)
  1. THYMOGLOBULIN [Suspect]
     Indication: IMMUNOSUPPRESSANT DRUG THERAPY
     Dosage: 1.5 MG/KG
     Dates: start: 20030624, end: 20030625
  2. THYMOGLOBULIN [Suspect]
     Indication: RENAL TRANSPLANT
     Dosage: 1.5 MG/KG
     Dates: start: 20030624, end: 20030625
  3. PROGRAF [Concomitant]
  4. AZATHIOPRINE [Concomitant]
  5. PREDNISONE [Concomitant]
  6. BACTRIM [Concomitant]
  7. MYCELEX [Concomitant]
  8. PROCARDIA [Concomitant]

REACTIONS (5)
  - CYTOKINE RELEASE SYNDROME [None]
  - HAEMATOCRIT DECREASED [None]
  - HYPOTENSION [None]
  - URINE OUTPUT INCREASED [None]
  - WOUND SECRETION [None]
